FAERS Safety Report 9059827 (Version 2)
Quarter: 2014Q1

REPORT INFORMATION
  Report Type: Spontaneous
  Country: PL (occurrence: PL)
  Receive Date: 20130212
  Receipt Date: 20140123
  Transmission Date: 20141002
  Serious: Yes (Disabling)
  Sender: FDA-Public Use
  Company Number: PL-JNJFOC-20130116005

PATIENT
  Age: 65 Year
  Sex: Male
  Weight: 68 kg

DRUGS (3)
  1. ZYTIGA [Suspect]
     Indication: PROSTATE CANCER
     Route: 048
     Dates: start: 20120831
  2. ENCORTON [Concomitant]
     Indication: PROSTATE CANCER
     Route: 048
     Dates: start: 20120831
  3. DOLTARD [Concomitant]
     Indication: PROSTATE CANCER
     Route: 048
     Dates: start: 20121114

REACTIONS (1)
  - Diplopia [Not Recovered/Not Resolved]
